FAERS Safety Report 18724300 (Version 1)
Quarter: 2021Q1

REPORT INFORMATION
  Report Type: Spontaneous
  Country: US (occurrence: US)
  Receive Date: 20210110
  Receipt Date: 20210110
  Transmission Date: 20210419
  Serious: Yes (Other)
  Sender: FDA-Public Use
  Company Number: None

PATIENT
  Age: 38 Year

DRUGS (4)
  1. ALPRAZOLAM 0.25MG [Concomitant]
     Active Substance: ALPRAZOLAM
     Dates: start: 20190612, end: 20210110
  2. OMEPRAZOLE CAPSULES, DELAYED?RELEASE [Suspect]
     Active Substance: OMEPRAZOLE
     Indication: GASTROOESOPHAGEAL REFLUX DISEASE
     Route: 048
     Dates: start: 20201210, end: 20201215
  3. ESZOPICLONE 2MG [Concomitant]
     Active Substance: ESZOPICLONE
     Dates: start: 20190612, end: 20210110
  4. TRINTELLIX [Concomitant]
     Active Substance: VORTIOXETINE HYDROBROMIDE
     Dates: start: 20200317, end: 20210110

REACTIONS (4)
  - Headache [None]
  - Impaired work ability [None]
  - Drug ineffective [None]
  - Diarrhoea [None]

NARRATIVE: CASE EVENT DATE: 20201215
